FAERS Safety Report 19983396 (Version 1)
Quarter: 2021Q4

REPORT INFORMATION
  Report Type: Other
  Country: CN (occurrence: CN)
  Receive Date: 20211021
  Receipt Date: 20211021
  Transmission Date: 20220304
  Serious: Yes (Life-Threatening)
  Sender: FDA-Public Use
  Company Number: CN-B.BRAUN MEDICAL INC.-2120841

PATIENT
  Age: 63 Year
  Sex: Male

DRUGS (1)
  1. MAGNESIUM SULFATE IN DEXTROSE [Suspect]
     Active Substance: MAGNESIUM SULFATE
     Indication: Gastrointestinal disorder

REACTIONS (11)
  - Nausea [Recovered/Resolved]
  - Vomiting [Recovered/Resolved]
  - Abdominal pain upper [Recovered/Resolved]
  - Dyspnoea [Recovered/Resolved]
  - Chest discomfort [Recovered/Resolved]
  - Palpitations [Recovered/Resolved]
  - Subcutaneous emphysema [Recovered/Resolved]
  - Pneumomediastinum [Recovered/Resolved]
  - Pleural effusion [Recovered/Resolved]
  - Pneumothorax [Recovered/Resolved]
  - Oesophageal rupture [Recovered/Resolved]
